FAERS Safety Report 16816208 (Version 1)
Quarter: 2019Q3

REPORT INFORMATION
  Report Type: Spontaneous
  Country: US (occurrence: US)
  Receive Date: 20190725
  Receipt Date: 20190725
  Transmission Date: 20191005
  Serious: No
  Sender: FDA-Public Use
  Company Number: None

PATIENT
  Age: 79 Year
  Sex: Male

DRUGS (2)
  1. BACITRACIN/NEOMYCIN/POLYMYXIN B [Suspect]
     Active Substance: BACITRACIN\NEOMYCIN\POLYMYXIN B SULFATE
     Indication: RADIATION NECROSIS
     Route: 031
     Dates: start: 20190605
  2. BACITRACIN/NEOMYCIN/POLYMYXIN B [Suspect]
     Active Substance: BACITRACIN\NEOMYCIN\POLYMYXIN B SULFATE
     Indication: DRY EYE
     Route: 031
     Dates: start: 20190605

REACTIONS (2)
  - Foreign body sensation in eyes [None]
  - Vision blurred [None]

NARRATIVE: CASE EVENT DATE: 20190723
